FAERS Safety Report 7445062-2 (Version None)
Quarter: 2011Q2

REPORT INFORMATION
  Report Type: 
  Country: None (occurrence: None)
  Receive Date: 20110429
  Receipt Date: 20110415
  Transmission Date: 20111010
  Serious: Yes (Hospitalization)
  Sender: FDA-Public Use
  Company Number: DE-JNJFOC-20110407338

PATIENT
  Sex: Female
  Weight: 60 kg

DRUGS (4)
  1. METHOTREXATE SODIUM [Suspect]
     Indication: JUVENILE ARTHRITIS
     Route: 065
  2. REMICADE [Suspect]
     Indication: PRODUCT USED FOR UNKNOWN INDICATION
     Route: 042
  3. METHOTREXATE SODIUM [Suspect]
     Route: 065
  4. ENBREL [Suspect]
     Indication: JUVENILE ARTHRITIS
     Route: 058

REACTIONS (1)
  - CERVICAL DYSPLASIA [None]
